FAERS Safety Report 6151613-0 (Version None)
Quarter: 2009Q2

REPORT INFORMATION
  Report Type: 
  Country: None (occurrence: None)
  Receive Date: 20090410
  Receipt Date: 20090330
  Transmission Date: 20091009
  Serious: Yes (Other)
  Sender: FDA-Public Use
  Company Number: GB-PFIZER INC-2009190714

PATIENT

DRUGS (1)
  1. VFEND [Suspect]

REACTIONS (3)
  - GASTROINTESTINAL OBSTRUCTION [None]
  - PERITONITIS [None]
  - PYREXIA [None]
